FAERS Safety Report 12738649 (Version 1)
Quarter: 2016Q3

REPORT INFORMATION
  Report Type: Spontaneous
  Country: US (occurrence: US)
  Receive Date: 20160912
  Receipt Date: 20160912
  Transmission Date: 20161109
  Serious: Yes (Disabling)
  Sender: FDA-Public Use
  Company Number: None

PATIENT
  Age: 38 Year
  Sex: Female
  Weight: 56.25 kg

DRUGS (10)
  1. FISH OIL [Concomitant]
     Active Substance: FISH OIL
  2. ESSENTIAL OILS. [Concomitant]
     Active Substance: ESSENTIAL OILS
  3. THYROID [Concomitant]
     Active Substance: LEVOTHYROXINE\LIOTHYRONINE
  4. PROGESTERONE. [Concomitant]
     Active Substance: PROGESTERONE
  5. MULTIVITAMINS [Concomitant]
     Active Substance: VITAMINS
  6. CALCIUM [Concomitant]
     Active Substance: CALCIUM
  7. COQ10 [Concomitant]
     Active Substance: UBIDECARENONE
  8. B VITAMINS [Concomitant]
     Active Substance: CYANOCOBALAMIN\DEXPANTHENOL\NIACINAMIDE\PYRIDOXINE HYDROCHLORIDE\RIBOFLAVIN 5^-PHOSPHATE SODIUM\THIAMINE HYDROCHLORIDE\VITAMIN B COMPLEX
  9. MAGNESIUM [Concomitant]
     Active Substance: MAGNESIUM
  10. CIPROFLAXIN [Suspect]
     Active Substance: CIPROFLOXACIN
     Indication: URINARY TRACT INFECTION
     Dosage: 3 TABLETS DAILY ORAL
     Route: 048
     Dates: start: 20060829, end: 20060901

REACTIONS (14)
  - Nausea [None]
  - Neuropathy peripheral [None]
  - Arthralgia [None]
  - Back pain [None]
  - Muscle twitching [None]
  - Insomnia [None]
  - Abdominal discomfort [None]
  - Anxiety [None]
  - Muscle contractions involuntary [None]
  - Myalgia [None]
  - Depression [None]
  - Fatigue [None]
  - Loose tooth [None]
  - Musculoskeletal disorder [None]

NARRATIVE: CASE EVENT DATE: 20060829
